FAERS Safety Report 20157915 (Version 1)
Quarter: 2021Q4

REPORT INFORMATION
  Report Type: Report from Study
  Country: BR (occurrence: BR)
  Receive Date: 20211207
  Receipt Date: 20211207
  Transmission Date: 20220303
  Serious: Yes (Other)
  Sender: FDA-Public Use
  Company Number: BR-TAKEDA-BR201934199

PATIENT
  Age: 7 Year
  Sex: Male
  Weight: 39 kg

DRUGS (4)
  1. IDURSULFASE [Suspect]
     Active Substance: IDURSULFASE
     Indication: Fabry^s disease
     Dosage: 3 DOSAGE FORM
     Route: 065
     Dates: start: 20140606
  2. IDURSULFASE [Suspect]
     Active Substance: IDURSULFASE
     Indication: Mucopolysaccharidosis II
     Dosage: 3 DOSAGE FORM, 1/WEEK
     Route: 042
     Dates: start: 2014
  3. MELATONIN [Concomitant]
     Active Substance: MELATONIN
     Indication: Insomnia
     Dosage: UNK
     Route: 065
     Dates: start: 202109
  4. ANNITA [Concomitant]
     Active Substance: NITAZOXANIDE
     Indication: Premedication
     Route: 065

REACTIONS (10)
  - Cardiac valve disease [Unknown]
  - Vomiting [Unknown]
  - Application site hypersensitivity [Unknown]
  - Fall [Not Recovered/Not Resolved]
  - Gait disturbance [Not Recovered/Not Resolved]
  - Sleep disorder [Not Recovered/Not Resolved]
  - Muscular weakness [Not Recovered/Not Resolved]
  - Pain [Unknown]
  - Off label use [Unknown]
  - Intentional product use issue [Unknown]

NARRATIVE: CASE EVENT DATE: 20210201
